FAERS Safety Report 7851178 (Version 3)
Quarter: 2013Q2

REPORT INFORMATION
  Report Type: Spontaneous
  Country: JP (occurrence: JP)
  Receive Date: 20110310
  Receipt Date: 20130621
  Transmission Date: 20140414
  Serious: Yes (Hospitalization, Other)
  Sender: FDA-Public Use
  Company Number: JP-PFIZER INC-2011036993

PATIENT
  Age: 62 Year
  Sex: Male
  Weight: 61 kg

DRUGS (18)
  1. LYRICA [Suspect]
     Indication: NEURALGIA
     Dosage: 75 MG PER DAY
     Route: 048
     Dates: start: 20110208, end: 20110215
  2. ATARAX-P [Suspect]
     Indication: INSOMNIA
     Dosage: 25 MG, 1X/DAY
     Route: 048
     Dates: start: 20110208, end: 20110215
  3. BAYASPIRIN [Concomitant]
     Indication: CEREBRAL INFARCTION
     Dosage: 100 MG, 1X/DAY
     Route: 048
  4. DIOVAN [Concomitant]
     Indication: HYPERTENSION
     Dosage: 150 MG, 1X/DAY
     Route: 048
  5. PLAVIX [Concomitant]
     Indication: CEREBRAL INFARCTION
     Dosage: 75 MG, 1X/DAY
     Route: 048
  6. ALFAROL [Concomitant]
     Indication: HYPERPARATHYROIDISM SECONDARY
     Dosage: 0.25 UG, 1X/DAY
     Route: 048
  7. PARIET [Concomitant]
     Indication: GASTRITIS
     Dosage: 10 MG, 2X/DAY
     Route: 048
  8. AMLODIN [Concomitant]
     Indication: HYPERTENSION
     Dosage: 10 MG, 1X/DAY
     Route: 048
  9. CALCIUM CARBONATE [Concomitant]
     Indication: HYPERPHOSPHATAEMIA
     Dosage: 1 G, 3X/DAY
     Route: 048
  10. LANTHANUM CARBONATE [Concomitant]
     Indication: HYPERPHOSPHATAEMIA
     Dosage: 250 MG, 1X/DAY
     Route: 048
  11. MUCOSTA [Concomitant]
     Indication: GASTRITIS
     Dosage: 100 MG, 3X/DAY
     Route: 048
  12. LOPRESOR [Concomitant]
     Dosage: 20 MG, 3X/DAY
     Route: 048
  13. SIGMART [Concomitant]
     Indication: ANGINA PECTORIS
     Dosage: 5 MG, 3X/DAY
     Route: 048
  14. OPALMON [Concomitant]
     Indication: PERIPHERAL ARTERIAL OCCLUSIVE DISEASE
     Dosage: 5 UG, 3X/DAY
     Route: 048
  15. VOLTAREN [Concomitant]
     Indication: PAIN
     Dosage: 25 MG, 2X/DAY
     Route: 048
  16. DAI-KENCHU-TO [Concomitant]
     Indication: CONSTIPATION
     Dosage: 2.5 G, 3X/DAY
     Route: 048
  17. AMOBAN [Concomitant]
     Indication: INSOMNIA
     Dosage: 15 MG, 1X/DAY
     Route: 048
  18. DARBEPOETIN ALFA [Concomitant]
     Indication: NEPHROGENIC ANAEMIA
     Dosage: 20 UG, WEEKLY
     Route: 042

REACTIONS (7)
  - Off label use [Recovered/Resolved]
  - Prescribed overdose [Unknown]
  - Loss of consciousness [Recovered/Resolved]
  - Fall [Unknown]
  - Malaise [Recovered/Resolved]
  - Somnolence [Recovered/Resolved]
  - Dizziness [Unknown]
